FAERS Safety Report 19026512 (Version 1)
Quarter: 2021Q1

REPORT INFORMATION
  Report Type: Spontaneous
  Country: DE (occurrence: DE)
  Receive Date: 20210318
  Receipt Date: 20210318
  Transmission Date: 20210420
  Serious: Yes (Hospitalization, Other)
  Sender: FDA-Public Use
  Company Number: DE-TEVA-2021-DE-1890909

PATIENT
  Age: 72 Year
  Sex: Male
  Weight: 96 kg

DRUGS (8)
  1. BISOPROLOL 5 [Suspect]
     Active Substance: BISOPROLOL
     Dosage: 2X 2.5MG (DOSAGE FOR EVENT); UNIT DOSE: 5 MG
     Route: 048
  2. LIXIANA 60 MG [Suspect]
     Active Substance: EDOXABAN TOSYLATE
     Indication: ATRIAL FIBRILLATION
  3. BISOPROLOL 5 [Suspect]
     Active Substance: BISOPROLOL
     Indication: HYPERTENSION
     Dosage: 2X5MG; UNIT DOSE: 10 MG
     Route: 048
  4. LIXIANA 60 MG [Suspect]
     Active Substance: EDOXABAN TOSYLATE
     Indication: ANTICOAGULANT THERAPY
     Dosage: 60 MG
     Route: 048
  5. L?THYROXIN [Suspect]
     Active Substance: LEVOTHYROXINE SODIUM
     Route: 065
  6. DELIX 5 [Suspect]
     Active Substance: RAMIPRIL
     Dosage: 2X 5MG; UNIT DOSE: 10 MG
     Route: 048
  7. ALLOPURINOL 300 [Suspect]
     Active Substance: ALLOPURINOL
     Indication: HYPERURICAEMIA
     Dosage: 300 MG
     Route: 048
  8. DELIX 5 [Suspect]
     Active Substance: RAMIPRIL
     Indication: HYPERTENSION
     Dosage: 2.5 MILLIGRAM DAILY; DOSAGE BEFORE THE EVENT)
     Route: 048

REACTIONS (4)
  - Dizziness [Unknown]
  - Visual field defect [Unknown]
  - Somnolence [Unknown]
  - Blood pressure increased [Unknown]

NARRATIVE: CASE EVENT DATE: 202101
